FAERS Safety Report 9753296 (Version 2)
Quarter: 2013Q4

REPORT INFORMATION
  Report Type: Spontaneous
  Country: US (occurrence: US)
  Receive Date: 20131213
  Receipt Date: 20131213
  Transmission Date: 20140711
  Serious: No
  Sender: FDA-Public Use
  Company Number: US-TEVA-402628USA

PATIENT
  Age: 37 Year
  Sex: Female
  Weight: 101.7 kg

DRUGS (2)
  1. PARAGARD 380A [Suspect]
     Indication: CONTRACEPTION
     Route: 015
     Dates: start: 201304, end: 20130507
  2. PARAGARD 380A [Suspect]
     Route: 015
     Dates: start: 20130507

REACTIONS (6)
  - Uterine spasm [Unknown]
  - Device expulsion [Recovered/Resolved]
  - Dyspareunia [Unknown]
  - Abdominal pain [Unknown]
  - Pelvic pain [Unknown]
  - Medical device complication [Recovered/Resolved]
